FAERS Safety Report 25435294 (Version 2)
Quarter: 2025Q3

REPORT INFORMATION
  Report Type: Report from Study
  Country: US (occurrence: US)
  Receive Date: 20250613
  Receipt Date: 20250716
  Transmission Date: 20251020
  Serious: No
  Sender: MALLINCKRODT
  Company Number: US-MALLINCKRODT-MNK202503603

PATIENT
  Sex: Female

DRUGS (1)
  1. CORTICOTROPIN [Suspect]
     Active Substance: CORTICOTROPIN
     Indication: Product used for unknown indication

REACTIONS (2)
  - Fatigue [Unknown]
  - Blood glucose increased [Unknown]
